FAERS Safety Report 8062040-3 (Version None)
Quarter: 2012Q1

REPORT INFORMATION
  Report Type: 
  Country: None (occurrence: None)
  Receive Date: 20120123
  Receipt Date: 20120118
  Transmission Date: 20120608
  Serious: Yes (Death)
  Sender: FDA-Public Use
  Company Number: US-CELGENEUS-163-21880-11090254

PATIENT
  Sex: Male

DRUGS (9)
  1. CYCLOBENZAPRINE [Concomitant]
     Route: 065
  2. SPIRONOLACTONE [Concomitant]
     Route: 065
  3. ALLOPURINOL [Concomitant]
     Route: 065
  4. DEXAMETHASONE [Concomitant]
     Route: 065
  5. AMBIEN [Concomitant]
     Route: 065
  6. PREDNISONE TAB [Concomitant]
     Route: 065
  7. DOXYCYCLINE HYCLATE [Concomitant]
     Route: 065
  8. REVLIMID [Suspect]
     Dosage: 15 MILLIGRAM
     Route: 048
     Dates: start: 20110809
  9. DOXEPIN [Concomitant]
     Route: 065

REACTIONS (2)
  - HEPATITIS [None]
  - HEPATIC CIRRHOSIS [None]
